FAERS Safety Report 9158226 (Version 1)
Quarter: 2013Q1

REPORT INFORMATION
  Report Type: Spontaneous
  Country: FR (occurrence: FR)
  Receive Date: 20130312
  Receipt Date: 20130312
  Transmission Date: 20140127
  Serious: Yes (Hospitalization)
  Sender: FDA-Public Use
  Company Number: FR-ROCHE-GNE298437

PATIENT
  Age: 75 Year
  Sex: Female
  Weight: 64.07 kg

DRUGS (12)
  1. LUCENTIS [Suspect]
     Indication: AGE-RELATED MACULAR DEGENERATION
     Route: 050
     Dates: start: 20090323
  2. LUCENTIS [Suspect]
     Dosage: UNK
     Route: 050
     Dates: start: 20090427
  3. LUCENTIS [Suspect]
     Dosage: UNK
     Route: 050
     Dates: start: 20090525
  4. LUCENTIS [Suspect]
     Dosage: UNK
     Route: 050
     Dates: start: 20090824
  5. LUCENTIS [Suspect]
     Dosage: UNK
     Route: 050
     Dates: start: 20091102
  6. LUCENTIS [Suspect]
     Dosage: UNK
     Route: 050
     Dates: start: 20091214
  7. APROVEL [Concomitant]
     Indication: PRODUCT USED FOR UNKNOWN INDICATION
     Dosage: UNK
     Route: 065
  8. VASTAREL [Concomitant]
     Indication: PRODUCT USED FOR UNKNOWN INDICATION
     Dosage: BEFORE 2008
     Route: 065
  9. LEVOTHYROX [Concomitant]
     Indication: PRODUCT USED FOR UNKNOWN INDICATION
     Dosage: UNK
     Route: 065
  10. ACTONEL [Concomitant]
     Indication: OSTEOPOROSIS
     Dosage: UNK
     Route: 065
  11. DEXTROPROPOXYPHENE HYDROCHLORIDE/PARACETAMOL [Concomitant]
     Indication: PAIN
  12. COAPROVEL [Concomitant]
     Indication: HYPERTENSION

REACTIONS (1)
  - Leukocytoclastic vasculitis [Recovering/Resolving]
